FAERS Safety Report 7782937-9 (Version None)
Quarter: 2011Q3

REPORT INFORMATION
  Report Type: 
  Country: None (occurrence: None)
  Receive Date: 20110927
  Receipt Date: 20110927
  Transmission Date: 20111222
  Serious: Yes (Hospitalization)
  Sender: FDA-Public Use
  Company Number: None

PATIENT
  Sex: Male
  Weight: 95 kg

DRUGS (1)
  1. INTRON A [Suspect]
     Dosage: 554 MILLION IU
     Dates: end: 20110808

REACTIONS (3)
  - BACTERIAL INFECTION [None]
  - TREMOR [None]
  - CHILLS [None]
